FAERS Safety Report 6622316-0 (Version None)
Quarter: 2010Q1

REPORT INFORMATION
  Report Type: 
  Country: None (occurrence: None)
  Receive Date: 20100304
  Receipt Date: 20100219
  Transmission Date: 20100710
  Serious: Yes (Other)
  Sender: FDA-Public Use
  Company Number: 1000012161

PATIENT
  Age: 47 Year
  Sex: Female

DRUGS (2)
  1. ESCITALOPRAM OXALATE [Suspect]
     Dosage: ONCE, ORAL
     Route: 048
     Dates: start: 20100219, end: 20100219
  2. LEXOTANIL (6 MILLIGRAM, TABLETS) [Suspect]
     Dosage: 300 MG, ONCE, ORAL
     Route: 048
     Dates: start: 20100219, end: 20100219

REACTIONS (4)
  - BRADYCARDIA [None]
  - INTENTIONAL OVERDOSE [None]
  - SOPOR [None]
  - SUICIDE ATTEMPT [None]
